FAERS Safety Report 5662730-3 (Version None)
Quarter: 2008Q1

REPORT INFORMATION
  Report Type: 
  Country: None (occurrence: None)
  Receive Date: 20080313
  Receipt Date: 20080304
  Transmission Date: 20080703
  Serious: Yes (Other)
  Sender: FDA-Public Use
  Company Number: US-WYE-H02933208

PATIENT
  Age: 17 Year
  Sex: Male
  Weight: 82.63 kg

DRUGS (1)
  1. ROBITUSSIN DM [Suspect]
     Indication: DRUG ABUSE
     Dosage: UNKNOWN
     Route: 048
     Dates: start: 20070101

REACTIONS (5)
  - ABNORMAL BEHAVIOUR [None]
  - APATHY [None]
  - DRUG ABUSE [None]
  - FEELING DRUNK [None]
  - SOMNOLENCE [None]
